FAERS Safety Report 7144733-5 (Version None)
Quarter: 2010Q4

REPORT INFORMATION
  Report Type: 
  Country: None (occurrence: None)
  Receive Date: 20101119
  Receipt Date: 20100120
  Transmission Date: 20110411
  Serious: Yes (Hospitalization)
  Sender: FDA-Public Use
  Company Number: UTC-000816

PATIENT
  Age: 67 Year
  Sex: Male
  Weight: 105.2 kg

DRUGS (17)
  1. TYVASO [Suspect]
     Indication: PULMONARY ARTERIAL HYPERTENSION
     Dosage: 144 MCG (36 MCG, 4 IN 1 D), INHALATION
     Route: 055
     Dates: start: 20100107
  2. COUMADIN [Concomitant]
  3. ADCIRCA [Concomitant]
  4. COLCHICINE [Concomitant]
  5. FUROSEMIDE [Concomitant]
  6. RISPERIDONE [Concomitant]
  7. SIMVASTATIN [Concomitant]
  8. VENTOLIN [Concomitant]
  9. VERAPAMIL [Concomitant]
  10. SYMBICORT [Concomitant]
  11. GLIPIZIDE XL (GLIPIZIDE) [Concomitant]
  12. ZAROXOLYN [Concomitant]
  13. FOSINOPRIL SODIUM [Concomitant]
  14. OXYGEN (OXYGEN) [Concomitant]
  15. JANUVIA [Concomitant]
  16. LIPITOR [Concomitant]
  17. ASPIRIN [Concomitant]

REACTIONS (1)
  - BLOOD URINE PRESENT [None]
